FAERS Safety Report 11338465 (Version 1)
Quarter: 2015Q3

REPORT INFORMATION
  Report Type: Spontaneous
  Country: US (occurrence: US)
  Receive Date: 20150803
  Receipt Date: 20150803
  Transmission Date: 20151125
  Serious: No
  Sender: FDA-Public Use
  Company Number: US-ELI_LILLY_AND_COMPANY-US200709004145

PATIENT
  Age: 8 Year
  Sex: Male
  Weight: 24.49 kg

DRUGS (1)
  1. STRATTERA [Suspect]
     Active Substance: ATOMOXETINE HYDROCHLORIDE
     Indication: ATTENTION DEFICIT/HYPERACTIVITY DISORDER
     Dosage: 18 MG, DAILY (1/D)
     Dates: start: 20070919

REACTIONS (6)
  - Energy increased [Unknown]
  - Feeling hot [Recovered/Resolved]
  - Hyperhidrosis [Unknown]
  - Nausea [Recovered/Resolved]
  - Insomnia [Unknown]
  - Peripheral coldness [Recovered/Resolved]

NARRATIVE: CASE EVENT DATE: 20070919
